FAERS Safety Report 15661297 (Version 3)
Quarter: 2018Q4

REPORT INFORMATION
  Report Type: Spontaneous
  Country: US (occurrence: US)
  Receive Date: 20181127
  Receipt Date: 20181206
  Transmission Date: 20190205
  Serious: Yes (Life-Threatening, Hospitalization, Other)
  Sender: FDA-Public Use
  Company Number: US-PFIZER INC-2018485842

PATIENT
  Age: 38 Year
  Sex: Male

DRUGS (3)
  1. SULFAMETHOXAZOLE/TRIMETHOPRIM [Suspect]
     Active Substance: SULFAMETHOXAZOLE\TRIMETHOPRIM
     Indication: MALAISE
  2. SULFAMETHOXAZOLE/TRIMETHOPRIM [Suspect]
     Active Substance: SULFAMETHOXAZOLE\TRIMETHOPRIM
     Indication: COUGH
     Dosage: 160 MG, UNK, (160 MG P.O. X 2)
     Route: 048
  3. SULFAMETHOXAZOLE/TRIMETHOPRIM [Suspect]
     Active Substance: SULFAMETHOXAZOLE\TRIMETHOPRIM
     Indication: PYREXIA

REACTIONS (11)
  - Rash [Recovering/Resolving]
  - Hyperbilirubinaemia [Recovering/Resolving]
  - Shock [Recovered/Resolved]
  - Hepatic enzyme increased [Recovering/Resolving]
  - Hypotension [Recovering/Resolving]
  - Pyrexia [Recovering/Resolving]
  - Lung infiltration [Recovering/Resolving]
  - Leukopenia [Recovering/Resolving]
  - Anaphylactic reaction [Recovering/Resolving]
  - Renal impairment [Recovering/Resolving]
  - Thrombocytopenia [Recovering/Resolving]
